FAERS Safety Report 5731947-1 (Version None)
Quarter: 2008Q2

REPORT INFORMATION
  Report Type: 
  Country: None (occurrence: None)
  Receive Date: 20080506
  Receipt Date: 20080506
  Transmission Date: 20081010
  Serious: No
  Sender: FDA-Public Use
  Company Number: None

PATIENT
  Age: 78 Year
  Sex: Male

DRUGS (8)
  1. DIGOXIN [Suspect]
     Indication: ATRIAL FIBRILLATION
     Dosage: ONE DAILY, PO
     Route: 048
     Dates: start: 20080108, end: 20080502
  2. GEMFIBROZIL [Concomitant]
  3. METOPROLOL TARTRATE [Concomitant]
  4. WARFARIN SODIUM [Concomitant]
  5. DIOVAN [Concomitant]
  6. METFORMIN HCL [Concomitant]
  7. BENAZEPRIL HYDROCHLORIDE [Concomitant]
  8. PRAVASTATIN [Concomitant]

REACTIONS (4)
  - DIARRHOEA [None]
  - DIZZINESS [None]
  - FATIGUE [None]
  - PHARMACEUTICAL PRODUCT COMPLAINT [None]
